FAERS Safety Report 16724476 (Version 1)
Quarter: 2019Q3

REPORT INFORMATION
  Report Type: Spontaneous
  Country: GB (occurrence: GB)
  Receive Date: 20190821
  Receipt Date: 20190821
  Transmission Date: 20191005
  Serious: Yes (Other)
  Sender: FDA-Public Use
  Company Number: GB-MYLANLABS-2019M1077341

PATIENT
  Age: 54 Year
  Sex: Female
  Weight: 57.15 kg

DRUGS (1)
  1. ZUMENON [Suspect]
     Active Substance: ESTRADIOL
     Indication: HORMONE REPLACEMENT THERAPY
     Dosage: 2 MILLIGRAM
     Route: 048
     Dates: start: 20190411

REACTIONS (1)
  - Cardiac flutter [Unknown]

NARRATIVE: CASE EVENT DATE: 20190413
